FAERS Safety Report 21601168 (Version 1)
Quarter: 2022Q4

REPORT INFORMATION
  Report Type: Spontaneous
  Country: US (occurrence: US)
  Receive Date: 20221116
  Receipt Date: 20221116
  Transmission Date: 20230113
  Serious: No
  Sender: FDA-Public Use
  Company Number: US-ELI_LILLY_AND_COMPANY-US202211004031

PATIENT
  Sex: Male

DRUGS (1)
  1. TRULICITY [Suspect]
     Active Substance: DULAGLUTIDE
     Indication: Product used for unknown indication
     Dosage: 1.5 MG, UNKNOWN
     Route: 065

REACTIONS (5)
  - Nausea [Recovering/Resolving]
  - Diarrhoea [Recovering/Resolving]
  - Dyspepsia [Recovering/Resolving]
  - Abdominal pain upper [Recovering/Resolving]
  - Abdominal discomfort [Recovering/Resolving]
